FAERS Safety Report 7575068-4 (Version None)
Quarter: 2011Q2

REPORT INFORMATION
  Report Type: 
  Country: None (occurrence: None)
  Receive Date: 20110627
  Receipt Date: 20110623
  Transmission Date: 20111010
  Serious: Yes (Other)
  Sender: FDA-Public Use
  Company Number: FR-EISAI INC-E2020-09353-SPO-FR

PATIENT
  Sex: Female

DRUGS (5)
  1. GLYBURIDE [Concomitant]
     Route: 048
     Dates: end: 20100101
  2. ARICEPT [Suspect]
     Route: 048
     Dates: start: 20091101, end: 20100101
  3. OXAZEPAM [Suspect]
     Route: 048
     Dates: start: 20091101, end: 20100118
  4. LEVOTHYROXINE SODIUM [Concomitant]
     Route: 048
  5. VALSARTAN [Concomitant]
     Dosage: 160 MG
     Route: 048

REACTIONS (3)
  - RESPIRATORY DISORDER [None]
  - ABNORMAL BEHAVIOUR [None]
  - SOMNOLENCE [None]
